FAERS Safety Report 8293506-9 (Version None)
Quarter: 2012Q2

REPORT INFORMATION
  Report Type: 
  Country: None (occurrence: None)
  Receive Date: 20120418
  Receipt Date: 20120410
  Transmission Date: 20120825
  Serious: Yes (Hospitalization)
  Sender: FDA-Public Use
  Company Number: US-AMGEN-USASP2012008295

PATIENT
  Age: 62 Year
  Sex: Male

DRUGS (1)
  1. ENBREL [Suspect]
     Indication: RHEUMATOID ARTHRITIS
     Dosage: 50 MG, QWK
     Dates: start: 20110916, end: 20120331

REACTIONS (20)
  - PNEUMONIA [None]
  - ABDOMINAL PAIN UPPER [None]
  - TYMPANIC MEMBRANE PERFORATION [None]
  - ANAEMIA [None]
  - DIARRHOEA [None]
  - RASH PRURITIC [None]
  - GOUT [None]
  - ANAL PRURITUS [None]
  - RASH ERYTHEMATOUS [None]
  - EAR INFECTION [None]
  - ERYTHEMA [None]
  - VIRAL INFECTION [None]
  - INFLUENZA [None]
  - INFECTION [None]
  - INJECTION SITE PAIN [None]
  - PROCTALGIA [None]
  - LOCALISED INFECTION [None]
  - SINUSITIS [None]
  - ACNE [None]
  - WHITE BLOOD CELL COUNT DECREASED [None]
